FAERS Safety Report 15931729 (Version 1)
Quarter: 2019Q1

REPORT INFORMATION
  Report Type: Spontaneous
  Country: US (occurrence: US)
  Receive Date: 20190207
  Receipt Date: 20190207
  Transmission Date: 20190417
  Serious: Yes (Hospitalization)
  Sender: FDA-Public Use
  Company Number: US-FRESENIUS MEDICAL CARE RENAL THERAPIES GROUP-FMC-1901-000133

PATIENT
  Age: 77 Year
  Sex: Male
  Weight: 80.6 kg

DRUGS (14)
  1. CALCIUM ACETATE. [Concomitant]
     Active Substance: CALCIUM ACETATE
  2. RENVELA [Concomitant]
     Active Substance: SEVELAMER CARBONATE
  3. LASIX [Concomitant]
     Active Substance: FUROSEMIDE
  4. RENA VITE [Concomitant]
  5. DELFLEX WITH DEXTROSE 1.5% LOW MAGNESIUM LOW CALCIUM [Suspect]
     Active Substance: CALCIUM CHLORIDE\DEXTROSE\MAGNESIUM CHLORIDE\SODIUM CHLORIDE\SODIUM LACTATE
     Indication: END STAGE RENAL DISEASE
     Route: 033
  6. XANAX [Concomitant]
     Active Substance: ALPRAZOLAM
     Indication: ANXIETY
  7. CALCITRIOL. [Concomitant]
     Active Substance: CALCITRIOL
  8. LANTUS [Concomitant]
     Active Substance: INSULIN GLARGINE
  9. PEPCID [Concomitant]
     Active Substance: FAMOTIDINE
  10. ZOLOFT [Concomitant]
     Active Substance: SERTRALINE HYDROCHLORIDE
  11. ACETYLSALICYLIC ACID [Concomitant]
     Active Substance: ASPIRIN
  12. INSULIN [Concomitant]
     Active Substance: INSULIN NOS
  13. MAGNEBIND [Concomitant]
  14. MIDODRINE [Concomitant]
     Active Substance: MIDODRINE

REACTIONS (1)
  - Peritonitis bacterial [Unknown]

NARRATIVE: CASE EVENT DATE: 20190124
